FAERS Safety Report 10599556 (Version 1)
Quarter: 2014Q4

REPORT INFORMATION
  Report Type: Spontaneous
  Country: SE (occurrence: SE)
  Receive Date: 20141121
  Receipt Date: 20141121
  Transmission Date: 20150529
  Serious: Yes (Hospitalization, Other)
  Sender: FDA-Public Use
  Company Number: SE-ELI_LILLY_AND_COMPANY-SE201411005382

PATIENT
  Age: 57 Year
  Sex: Male

DRUGS (1)
  1. STRATTERA [Suspect]
     Active Substance: ATOMOXETINE HYDROCHLORIDE
     Indication: PRODUCT USED FOR UNKNOWN INDICATION
     Dosage: UNK UNK, UNKNOWN
     Route: 065
     Dates: end: 201410

REACTIONS (6)
  - Cryoglobulinaemia [Unknown]
  - Pain in extremity [Unknown]
  - Hypersensitivity vasculitis [Recovered/Resolved]
  - Petechiae [Unknown]
  - Purpura [Unknown]
  - Vasculitis [Unknown]

NARRATIVE: CASE EVENT DATE: 201410
